FAERS Safety Report 23647449 (Version 1)
Quarter: 2024Q1

REPORT INFORMATION
  Report Type: Other
  Country: CN (occurrence: CN)
  Receive Date: 20240319
  Receipt Date: 20240319
  Transmission Date: 20240409
  Serious: Yes (Hospitalization, Disabling)
  Sender: FDA-Public Use
  Company Number: CN-GE HEALTHCARE-2024CSU002495

PATIENT
  Age: 69 Year
  Sex: Female
  Weight: 66 kg

DRUGS (2)
  1. OMNIPAQUE [Suspect]
     Active Substance: IOHEXOL
     Indication: Device embolisation
     Dosage: 100 ML, TOTAL
     Route: 042
     Dates: start: 20231019, end: 20231019
  2. OMNIPAQUE [Suspect]
     Active Substance: IOHEXOL
     Indication: Arterial catheterisation

REACTIONS (3)
  - Generalised tonic-clonic seizure [Recovering/Resolving]
  - Encephalopathy [Recovering/Resolving]
  - Pyrexia [Recovered/Resolved]

NARRATIVE: CASE EVENT DATE: 20231019
